FAERS Safety Report 14546347 (Version 6)
Quarter: 2018Q3

REPORT INFORMATION
  Report Type: Spontaneous
  Country: US (occurrence: US)
  Receive Date: 20180219
  Receipt Date: 20180828
  Transmission Date: 20181010
  Serious: Yes (Other)
  Sender: FDA-Public Use
  Company Number: US-BRISTOL-MYERS SQUIBB COMPANY-BMS-2018-015693

PATIENT
  Sex: Female
  Weight: 82.86 kg

DRUGS (1)
  1. ORENCIA [Suspect]
     Active Substance: ABATACEPT
     Indication: RHEUMATOID ARTHRITIS
     Dosage: 125 MG, QWK
     Route: 058
     Dates: start: 201707

REACTIONS (12)
  - Ill-defined disorder [Unknown]
  - Oral herpes [Recovering/Resolving]
  - Malaise [Recovering/Resolving]
  - Drug dose omission [Unknown]
  - Back pain [Unknown]
  - Oral infection [Unknown]
  - Sinusitis [Unknown]
  - Nasopharyngitis [Recovering/Resolving]
  - Gastric infection [Unknown]
  - Infection [Unknown]
  - Stomatitis [Unknown]
  - Rash [Unknown]
